FAERS Safety Report 20083255 (Version 1)
Quarter: 2021Q4

REPORT INFORMATION
  Report Type: Spontaneous
  Country: DE (occurrence: DE)
  Receive Date: 20211117
  Receipt Date: 20211117
  Transmission Date: 20220303
  Serious: Yes (Hospitalization, Other)
  Sender: FDA-Public Use
  Company Number: DE-ADRED-07258-01

PATIENT
  Age: 65 Year
  Sex: Female
  Weight: 49 kg

DRUGS (8)
  1. TORSEMIDE [Suspect]
     Active Substance: TORSEMIDE
     Indication: Product used for unknown indication
     Dosage: 10 MILLIGRAM, QD (10 MG, 2-0-0-0, TABLETTEN)
     Route: 048
  2. NALOXONE HYDROCHLORIDE\TILIDINE HYDROCHLORIDE [Suspect]
     Active Substance: NALOXONE HYDROCHLORIDE\TILIDINE HYDROCHLORIDE
     Indication: Product used for unknown indication
     Dosage: 8|100 MG, 1-0-1-1, RETARD-TABLETTEN
     Route: 048
  3. ATORVASTATIN [Concomitant]
     Active Substance: ATORVASTATIN
     Dosage: 40 MILLIGRAM, QD (0-0-1-0, TABLETTEN)
     Route: 048
  4. ASPIRIN [Concomitant]
     Active Substance: ASPIRIN
     Dosage: 100 MILLIGRAM, QD (100 MG, 0-1-0-0, TABLETTEN)
     Route: 048
  5. POTASSIUM CHLORIDE [Concomitant]
     Active Substance: POTASSIUM CHLORIDE
     Dosage: 600 MILLIGRAM (1-1-1-0, RETARD-TABLETTEN)
     Route: 048
  6. OMEPRAZOL                          /00661201/ [Concomitant]
     Dosage: 40 MILLIGRAM, QD (1-0-0-0, TABLETTEN)
     Route: 048
  7. QUETIAPINE [Concomitant]
     Active Substance: QUETIAPINE
     Dosage: 50 MILLIGRAM, QD ( 0-1-0-0, RETARD-TABLETTEN)
     Route: 048
  8. BISOPROLOL [Concomitant]
     Active Substance: BISOPROLOL
     Dosage: 5 MILLIGRAM, QD (1-0-0-0, TABLETTEN)
     Route: 048

REACTIONS (9)
  - Dysuria [Unknown]
  - Weight decreased [Unknown]
  - General physical health deterioration [Unknown]
  - Night sweats [Unknown]
  - Vomiting [Unknown]
  - Nausea [Unknown]
  - Abdominal pain lower [Unknown]
  - Hypokalaemia [Unknown]
  - Hyponatraemia [Unknown]
